FAERS Safety Report 4703271-7 (Version None)
Quarter: 2005Q2

REPORT INFORMATION
  Report Type: 
  Country: None (occurrence: None)
  Receive Date: 20050629
  Receipt Date: 20050309
  Transmission Date: 20051028
  Serious: Yes (Life-Threatening, Hospitalization, Disabling)
  Sender: FDA-Public Use
  Company Number: US-MERCK-0503USA01719

PATIENT
  Age: 43 Year
  Sex: Male
  Weight: 140 kg

DRUGS (14)
  1. VIOXX [Suspect]
     Indication: BACK PAIN
     Route: 048
     Dates: start: 19990101, end: 20030519
  2. VIOXX [Suspect]
     Indication: INTERVERTEBRAL DISC DEGENERATION
     Route: 048
     Dates: start: 19990101, end: 20030519
  3. WELLBUTRIN [Concomitant]
     Route: 065
     Dates: start: 19980101
  4. AVANDIA [Concomitant]
     Route: 065
  5. COMBIVENT [Concomitant]
     Route: 065
  6. RHINOCORT [Concomitant]
     Route: 065
  7. ASTELIN [Concomitant]
     Route: 065
  8. GLUCOTROL [Concomitant]
     Route: 065
  9. AUGMENTIN [Concomitant]
     Route: 065
  10. ZITHROMAX [Concomitant]
     Route: 065
  11. HYDROCODONE BITARTRATE + ACETAMINOPHEN [Concomitant]
     Route: 065
     Dates: start: 20000929
  12. HYDROCODONE BITARTRATE + ACETAMINOPHEN [Concomitant]
     Route: 065
     Dates: start: 20010208
  13. RELAFEN [Concomitant]
     Route: 065
     Dates: start: 20000929
  14. VICODIN [Concomitant]
     Route: 065
     Dates: start: 20030214

REACTIONS (22)
  - APHASIA [None]
  - BACK DISORDER [None]
  - BACK INJURY [None]
  - BACK PAIN [None]
  - BASAL CELL CARCINOMA [None]
  - BLOOD CHOLESTEROL INCREASED [None]
  - CAUDA EQUINA SYNDROME [None]
  - CEREBROVASCULAR ACCIDENT [None]
  - DIABETES MELLITUS INADEQUATE CONTROL [None]
  - FACIAL PAIN [None]
  - FRACTURE [None]
  - HEMIPARESIS [None]
  - HYPERKERATOSIS [None]
  - HYPERTENSION [None]
  - INJURY [None]
  - MELANOCYTIC NAEVUS [None]
  - NASAL CONGESTION [None]
  - OEDEMA PERIPHERAL [None]
  - TOE DEFORMITY [None]
  - UPPER RESPIRATORY TRACT INFECTION [None]
  - VARICOSE VEIN [None]
  - WEIGHT INCREASED [None]
